FAERS Safety Report 8889166 (Version 1)
Quarter: 2012Q4

REPORT INFORMATION
  Report Type: 
  Country: IT (occurrence: IT)
  Receive Date: 20121106
  Receipt Date: 20121106
  Transmission Date: 20130627
  Serious: Yes (Other)
  Sender: FDA-Public Use
  Company Number: IT-PFIZER INC-2012275706

PATIENT
  Age: 37 Year
  Sex: Female

DRUGS (2)
  1. XANAX [Suspect]
     Indication: DRUG ABUSE
     Dosage: 20 ml, UNK
     Route: 048
     Dates: start: 20121023, end: 20121023
  2. VALIUM [Suspect]
     Indication: DRUG ABUSE
     Dosage: 20 ml, UNK
     Route: 048
     Dates: start: 20121023, end: 20121023

REACTIONS (2)
  - Drug abuse [Recovered/Resolved]
  - Confusional state [Recovered/Resolved]
